FAERS Safety Report 7334968-0 (Version None)
Quarter: 2011Q1

REPORT INFORMATION
  Report Type: 
  Country: None (occurrence: None)
  Receive Date: 20110307
  Receipt Date: 20110225
  Transmission Date: 20110831
  Serious: Yes (Other)
  Sender: FDA-Public Use
  Company Number: CA-ROCHE-762482

PATIENT
  Age: 60 Year
  Sex: Male
  Weight: 68 kg

DRUGS (3)
  1. EPREX [Suspect]
     Dosage: ONCE
     Route: 042
  2. PEGASYS [Suspect]
     Route: 065
  3. RIBAVIRIN [Suspect]
     Route: 065

REACTIONS (8)
  - FATIGUE [None]
  - PYREXIA [None]
  - MALAISE [None]
  - HAEMOGLOBIN DECREASED [None]
  - EYELID OEDEMA [None]
  - VISION BLURRED [None]
  - PAIN [None]
  - SENSATION OF HEAVINESS [None]
